FAERS Safety Report 8565085-X (Version None)
Quarter: 2012Q3

REPORT INFORMATION
  Report Type: 
  Country: None (occurrence: None)
  Receive Date: 20120803
  Receipt Date: 20120726
  Transmission Date: 20120928
  Serious: Yes (Other)
  Sender: FDA-Public Use
  Company Number: US-BAYER-2011-081820

PATIENT
  Age: 37 Year
  Sex: Female
  Weight: 105.22 kg

DRUGS (6)
  1. NSAID'S [Concomitant]
     Dosage: UNK
     Dates: start: 20070101
  2. YASMIN [Suspect]
     Dosage: UNK
     Route: 048
     Dates: start: 20090227, end: 20090527
  3. YASMIN [Suspect]
     Indication: PREMENSTRUAL SYNDROME
     Dosage: UNK
     Route: 048
     Dates: start: 20060101, end: 20070101
  4. RELPAX [Concomitant]
     Indication: MIGRAINE
     Dosage: UNK
  5. CYMBALTA [Concomitant]
     Indication: DEPRESSION
     Dosage: UNK
  6. OTHER ANALGESICS AND ANTIPYRETICS [Concomitant]

REACTIONS (7)
  - CHOLECYSTITIS CHRONIC [None]
  - GALLBLADDER INJURY [None]
  - INJURY [None]
  - PAIN [None]
  - BIPOLAR I DISORDER [None]
  - POST-TRAUMATIC STRESS DISORDER [None]
  - ANXIETY [None]
